FAERS Safety Report 7159480-3 (Version None)
Quarter: 2010Q4

REPORT INFORMATION
  Report Type: 
  Country: None (occurrence: None)
  Receive Date: 20101214
  Receipt Date: 20100910
  Transmission Date: 20110411
  Serious: No
  Sender: FDA-Public Use
  Company Number: US-ASTRAZENECA-2010SE42738

PATIENT
  Age: 49 Year
  Sex: Male
  Weight: 90.7 kg

DRUGS (2)
  1. CRESTOR [Suspect]
     Indication: HYPERCHOLESTEROLAEMIA
     Route: 048
     Dates: start: 20100827
  2. TEVETEN [Concomitant]

REACTIONS (1)
  - MUSCLE TWITCHING [None]
